FAERS Safety Report 5949506-4 (Version None)
Quarter: 2008Q4

REPORT INFORMATION
  Report Type: 
  Country: None (occurrence: None)
  Receive Date: 20081112
  Receipt Date: 20081105
  Transmission Date: 20090506
  Serious: Yes (Death)
  Sender: FDA-Public Use
  Company Number: PHEH2008US09132

PATIENT
  Sex: Female
  Weight: 47.166 kg

DRUGS (12)
  1. ZOMETA [Suspect]
     Indication: METASTASES TO BONE
     Dosage: 4MG MONTHLY
     Route: 042
     Dates: start: 20070830, end: 20080320
  2. ZOMETA [Suspect]
     Indication: BREAST CANCER
  3. ZOMETA [Suspect]
     Indication: METASTASES TO LIVER
  4. TAXOL [Concomitant]
     Indication: BREAST CANCER METASTATIC
     Dosage: UNK
     Dates: start: 20070830, end: 20071011
  5. ADRIAMYCIN PFS [Concomitant]
     Indication: BREAST CANCER METASTATIC
     Dosage: UNK
     Dates: start: 20071101, end: 20071220
  6. CYTOXAN [Concomitant]
     Indication: BREAST CANCER METASTATIC
     Dosage: UNK
     Dates: start: 20071101, end: 20071230
  7. PREDNISONE TAB [Concomitant]
     Indication: BRONCHIAL DISORDER
     Dosage: 10 MG, QD
  8. SPIRIVA [Concomitant]
     Indication: BRONCHIAL DISORDER
     Dosage: 18MCG QD
  9. ADVAIR DISKUS 100/50 [Concomitant]
     Indication: BRONCHIAL DISORDER
     Dosage: 1 PUFF
  10. ALBUTEROL [Concomitant]
     Indication: BRONCHIAL DISORDER
     Dosage: 2 PUFFS QID
  11. DARVOCET-N 100 [Concomitant]
     Indication: PAIN
     Dosage: 1 TAB EVERY 4HRS PRN
     Route: 048
  12. LORAZEPAM [Concomitant]
     Indication: PAIN
     Dosage: 1 MG, Q8H
     Route: 048

REACTIONS (1)
  - MALIGNANT NEOPLASM PROGRESSION [None]
